FAERS Safety Report 4999178-0 (Version None)
Quarter: 2006Q2

REPORT INFORMATION
  Report Type: 
  Country: None (occurrence: None)
  Receive Date: 20060511
  Receipt Date: 20060428
  Transmission Date: 20061013
  Serious: Yes (Other)
  Sender: FDA-Public Use
  Company Number: PHBS2006JP06348

PATIENT

DRUGS (2)
  1. TEGRETOL [Suspect]
     Indication: MENTAL RETARDATION SEVERITY UNSPECIFIED
     Route: 065
  2. MELLARIL [Suspect]
     Indication: MENTAL RETARDATION SEVERITY UNSPECIFIED
     Route: 048

REACTIONS (1)
  - DIABETES INSIPIDUS [None]
